FAERS Safety Report 14188086 (Version 2)
Quarter: 2017Q4

REPORT INFORMATION
  Report Type: Spontaneous
  Country: IT (occurrence: IT)
  Receive Date: 20171114
  Receipt Date: 20171121
  Transmission Date: 20180321
  Serious: Yes (Hospitalization, Other)
  Sender: FDA-Public Use
  Company Number: IT-TAKEDA-2017TEU004797

PATIENT
  Age: 49 Year
  Sex: Female
  Weight: 90 kg

DRUGS (3)
  1. INSULIN GLARGINE [Suspect]
     Active Substance: INSULIN GLARGINE
     Indication: SUICIDE ATTEMPT
     Dosage: 40 IU, UNK
     Route: 058
  2. PIOGLITAZONE. [Suspect]
     Active Substance: PIOGLITAZONE
     Indication: SUICIDE ATTEMPT
     Dosage: 1.6 G, UNK
     Route: 048
  3. METFORMIN [Suspect]
     Active Substance: METFORMIN HYDROCHLORIDE
     Indication: SUICIDE ATTEMPT
     Dosage: 95.2 G, UNK
     Route: 048

REACTIONS (4)
  - Lactic acidosis [Recovered/Resolved]
  - Suicide attempt [Unknown]
  - Shock [Recovered/Resolved]
  - Intentional overdose [Recovered/Resolved]
